FAERS Safety Report 8210379-0 (Version None)
Quarter: 2012Q1

REPORT INFORMATION
  Report Type: 
  Country: None (occurrence: None)
  Receive Date: 20120314
  Receipt Date: 20110419
  Transmission Date: 20120608
  Serious: No
  Sender: FDA-Public Use
  Company Number: US-ASTRAZENECA-2006UW08797

PATIENT
  Age: 54 Year
  Sex: Female

DRUGS (2)
  1. CRESTOR [Suspect]
     Route: 048
  2. TOPROL-XL [Suspect]
     Route: 048

REACTIONS (7)
  - OROPHARYNGEAL DISCOMFORT [None]
  - MALAISE [None]
  - PERIPHERAL COLDNESS [None]
  - ALOPECIA [None]
  - HYPOAESTHESIA [None]
  - RASH [None]
  - DYSPNOEA [None]
